FAERS Safety Report 9050385 (Version 1)
Quarter: 2013Q1

REPORT INFORMATION
  Report Type: Spontaneous
  Country: BR (occurrence: BR)
  Receive Date: 20130205
  Receipt Date: 20130205
  Transmission Date: 20140127
  Serious: Yes (Other)
  Sender: FDA-Public Use
  Company Number: BR-JNJFOC-20130200067

PATIENT
  Sex: Female
  Weight: 50 kg

DRUGS (3)
  1. MYLANTA PLUS [Suspect]
     Indication: GASTRITIS
     Dosage: AS NEEDED
     Route: 048
     Dates: start: 2008
  2. ABLOK [Concomitant]
     Indication: HYPERTENSION
     Route: 048
     Dates: start: 2011
  3. GLIFAGE [Concomitant]
     Indication: DIABETES PROPHYLAXIS
     Route: 048
     Dates: start: 2011

REACTIONS (2)
  - Hepatic steatosis [Not Recovered/Not Resolved]
  - Intentional drug misuse [Not Recovered/Not Resolved]
